FAERS Safety Report 11898103 (Version 1)
Quarter: 2016Q1

REPORT INFORMATION
  Report Type: Spontaneous
  Country: US (occurrence: US)
  Receive Date: 20160108
  Receipt Date: 20160108
  Transmission Date: 20160526
  Serious: No
  Sender: FDA-Public Use
  Company Number: US-BAYER-2016-003259

PATIENT
  Age: 28 Year
  Sex: Male

DRUGS (6)
  1. SULIFUR [Concomitant]
  2. DOXYCYCLINE. [Concomitant]
     Active Substance: DOXYCYCLINE
     Indication: GRANULOMATOUS ROSACEA
     Dosage: 100 MG, BID
  3. DOXYCYCLINE. [Concomitant]
     Active Substance: DOXYCYCLINE
     Indication: GRANULOMATOUS ROSACEA
     Dosage: 100 MG, TID
  4. BENZOYL PEROXIDE. [Concomitant]
     Active Substance: BENZOYL PEROXIDE
  5. PIMECROLIMUS [Concomitant]
     Active Substance: PIMECROLIMUS
  6. AZELAIC ACID. [Suspect]
     Active Substance: AZELAIC ACID

REACTIONS (2)
  - Eye irritation [None]
  - Skin irritation [None]
